FAERS Safety Report 6308162-6 (Version None)
Quarter: 2009Q3

REPORT INFORMATION
  Report Type: 
  Country: None (occurrence: None)
  Receive Date: 20090810
  Receipt Date: 20090729
  Transmission Date: 20100115
  Serious: Yes (Other)
  Sender: FDA-Public Use
  Company Number: 340838

PATIENT
  Sex: Male

DRUGS (2)
  1. VANCOMYCIN [Suspect]
     Indication: STAPHYLOCOCCAL INFECTION
     Dosage: 1 G, INTRAVENOUS; 500 MG EVERY 24 HOURS INTRAVENOUS
     Route: 042
  2. HEPARIN [Concomitant]

REACTIONS (6)
  - CARDIAC VALVE VEGETATION [None]
  - CEREBRAL HAEMORRHAGE [None]
  - DRUG RESISTANCE [None]
  - MENTAL STATUS CHANGES [None]
  - NO THERAPEUTIC RESPONSE [None]
  - RENAL IMPAIRMENT [None]
